FAERS Safety Report 25941063 (Version 1)
Quarter: 2025Q4

REPORT INFORMATION
  Report Type: Spontaneous
  Country: US (occurrence: None)
  Receive Date: 20251018
  Receipt Date: 20251018
  Transmission Date: 20260118
  Serious: Yes (Other)
  Sender: FDA-CTU
  Company Number: None

PATIENT
  Age: 57 Year
  Sex: Female
  Weight: 56.7 kg

DRUGS (9)
  1. PREGABALIN [Suspect]
     Active Substance: PREGABALIN
     Indication: Insomnia
     Dosage: OTHER QUANTITY : 2 CAPSULE(S);?FREQUENCY : AT BEDTIME;?
     Route: 048
  2. PREGABALIN [Suspect]
     Active Substance: PREGABALIN
     Indication: Neuralgia
  3. SYNTHROID [Concomitant]
     Active Substance: LEVOTHYROXINE SODIUM
  4. PROPRANOLOL [Concomitant]
     Active Substance: PROPRANOLOL HYDROCHLORIDE
  5. CYMBALTA [Concomitant]
     Active Substance: DULOXETINE HYDROCHLORIDE
  6. pantoprizol [Concomitant]
  7. COLESTIPOL [Concomitant]
     Active Substance: COLESTIPOL
  8. SUCRALFATE [Concomitant]
     Active Substance: SUCRALFATE
  9. Multi vitamin gummies [Concomitant]

REACTIONS (4)
  - Neuralgia [None]
  - Burning sensation [None]
  - Middle insomnia [None]
  - Palpitations [None]

NARRATIVE: CASE EVENT DATE: 20251015
